FAERS Safety Report 8539666-3 (Version None)
Quarter: 2012Q3

REPORT INFORMATION
  Report Type: 
  Country: None (occurrence: None)
  Receive Date: 20120726
  Receipt Date: 20110720
  Transmission Date: 20120928
  Serious: No
  Sender: FDA-Public Use
  Company Number: US-ASTRAZENECA-2009UW04071

PATIENT
  Age: 35 Year
  Sex: Female
  Weight: 83.9 kg

DRUGS (14)
  1. RISPERDAL [Concomitant]
     Dates: start: 20060101
  2. FLUOXETINE [Concomitant]
     Dosage: 20 MG TO 40 MG
     Dates: start: 20020101, end: 20040101
  3. SEROQUEL [Suspect]
     Route: 048
     Dates: start: 20030415
  4. SEROQUEL [Suspect]
     Route: 048
     Dates: start: 20030415
  5. ZYPREXA [Concomitant]
     Dates: start: 20020101
  6. ULTRAM [Concomitant]
     Route: 048
     Dates: start: 20000805
  7. ACETAMINOPHEN/COD [Concomitant]
     Dosage: 3 TABLET
     Route: 048
     Dates: start: 20010211
  8. SEROQUEL [Suspect]
     Indication: DEPRESSION
     Dosage: 25 MG TO 600 MG
     Route: 048
     Dates: start: 19970101
  9. SEROQUEL [Suspect]
     Indication: ANXIETY
     Dosage: 25 MG TO 600 MG
     Route: 048
     Dates: start: 19970101
  10. GEODON [Concomitant]
     Dosage: 50 MG TO 100 MG
     Dates: start: 20040101, end: 20050101
  11. ABILIFY [Concomitant]
     Dosage: 10 MG TO 15 MG
     Dates: start: 20050101, end: 20070101
  12. SERTRALINE HYDROCHLORIDE [Concomitant]
     Dates: start: 20070101
  13. CLINDAMYCIN [Concomitant]
     Route: 048
     Dates: start: 20000805
  14. DOXYCYCLINE HCL [Concomitant]
     Route: 048
     Dates: start: 20011011

REACTIONS (5)
  - UPPER LIMB FRACTURE [None]
  - FIBROMYALGIA [None]
  - MIGRAINE [None]
  - OBESITY [None]
  - TYPE 2 DIABETES MELLITUS [None]
